FAERS Safety Report 7399281-4 (Version None)
Quarter: 2011Q1

REPORT INFORMATION
  Report Type: 
  Country: None (occurrence: None)
  Receive Date: 20110328
  Receipt Date: 20110311
  Transmission Date: 20110831
  Serious: Yes (Other)
  Sender: FDA-Public Use
  Company Number: 2011P1004909

PATIENT
  Age: 8 Month
  Sex: Female
  Weight: 11 kg

DRUGS (1)
  1. CLOBETASOL PROPIONATE [Suspect]
     Indication: DERMATITIS DIAPER
     Dosage: 8-9 TIMES, DAILY

REACTIONS (5)
  - SECONDARY ADRENOCORTICAL INSUFFICIENCY [None]
  - HYPERTENSION [None]
  - INCORRECT DRUG ADMINISTRATION DURATION [None]
  - CUSHING'S SYNDROME [None]
  - SKIN CANDIDA [None]
